FAERS Safety Report 8251049-2 (Version None)
Quarter: 2012Q2

REPORT INFORMATION
  Report Type: 
  Country: None (occurrence: None)
  Receive Date: 20120402
  Receipt Date: 20120323
  Transmission Date: 20120825
  Serious: Yes (Hospitalization)
  Sender: FDA-Public Use
  Company Number: US-JNJFOC-20120305141

PATIENT
  Age: 61 Year
  Sex: Male
  Weight: 97.5 kg

DRUGS (5)
  1. PREDNISONE TAB [Suspect]
     Indication: PROSTATE CANCER METASTATIC
     Route: 048
     Dates: start: 20111227
  2. ABIRATERONE ACETATE [Suspect]
     Route: 048
  3. DOCETAXEL [Suspect]
     Indication: PROSTATE CANCER METASTATIC
     Dosage: CYCLE 1
     Route: 042
     Dates: start: 20111227
  4. ABIRATERONE ACETATE [Suspect]
     Indication: PROSTATE CANCER METASTATIC
     Route: 048
     Dates: start: 20120103
  5. DOCETAXEL [Suspect]
     Dosage: CYCLE 4
     Route: 042
     Dates: start: 20120228

REACTIONS (1)
  - FEBRILE NEUTROPENIA [None]
